FAERS Safety Report 9518605 (Version 1)
Quarter: 2013Q3

REPORT INFORMATION
  Report Type: Report from Study
  Country: AR (occurrence: AR)
  Receive Date: 20130912
  Receipt Date: 20130912
  Transmission Date: 20140515
  Serious: Yes (Hospitalization)
  Sender: FDA-Public Use
  Company Number: PHHY2013AR100162

PATIENT
  Sex: Male

DRUGS (1)
  1. DIOVAN [Suspect]
     Indication: HYPERTENSION
     Dosage: 160 MG, DAILY
     Route: 048
     Dates: end: 201204

REACTIONS (3)
  - Blood glucose fluctuation [Recovered/Resolved]
  - Cardiac disorder [Recovered/Resolved]
  - General physical health deterioration [Recovered/Resolved]
